FAERS Safety Report 10373828 (Version 1)
Quarter: 2014Q1

REPORT INFORMATION
  Report Type: Spontaneous
  Country: US (occurrence: None)
  Receive Date: 20140306
  Receipt Date: 20140306
  Transmission Date: 20141002
  Serious: Yes (Disabling)
  Sender: FDA-Public Use
  Company Number: 163-21880-13094373

PATIENT
  Age: 79 Year
  Sex: Male

DRUGS (1)
  1. REVLIMID [Suspect]
     Indication: PLASMA CELL LEUKAEMIA
     Dosage: 30-AUG-2013 - TEMPORARILY INTERRUPTED?25 MG, 21 IN 21 D, PO
     Route: 048
     Dates: start: 20130830

REACTIONS (3)
  - Rash generalised [None]
  - Pyrexia [None]
  - Pruritus [None]
